FAERS Safety Report 8811652 (Version 1)
Quarter: 2012Q4

REPORT INFORMATION
  Report Type: Spontaneous
  Country: DE (occurrence: None)
  Receive Date: 20120924
  Receipt Date: 20120924
  Transmission Date: 20130627
  Serious: Yes (Congenital Anomaly, Other)
  Sender: FDA-Public Use
  Company Number: GER/GER/12/0025897

PATIENT
  Sex: Female
  Weight: 3.29 kg

DRUGS (3)
  1. SERTRALINE (SERTRALINE) (SERTRALINE) [Suspect]
     Indication: DRUG USE FOR UNKNOWN INDICATION
     Dosage: 25 MG, 1D, TRANSPLACENTAL
     Route: 064
     Dates: start: 20110410, end: 20120102
  2. FOLIO FORTE (FOLIC ACID) [Concomitant]
  3. CYTOTEC (MISOPROSTOL) [Concomitant]

REACTIONS (2)
  - Umbilical artery hypoplasia [None]
  - Exposure during pregnancy [None]
